FAERS Safety Report 24795202 (Version 1)
Quarter: 2024Q4

REPORT INFORMATION
  Report Type: Spontaneous
  Country: CA (occurrence: CA)
  Receive Date: 20241231
  Receipt Date: 20241231
  Transmission Date: 20250114
  Serious: Yes (Other)
  Sender: ALEXION PHARMACEUTICALS
  Company Number: CA-HALEON-2218221

PATIENT
  Age: 41 Year

DRUGS (366)
  1. NEXIUM [Suspect]
     Active Substance: ESOMEPRAZOLE MAGNESIUM
     Indication: Migraine
     Dosage: 40 MILLIGRAM
     Route: 065
  2. NEXIUM [Suspect]
     Active Substance: ESOMEPRAZOLE MAGNESIUM
     Dosage: 40 MILLIGRAM
     Route: 065
  3. NEXIUM [Suspect]
     Active Substance: ESOMEPRAZOLE MAGNESIUM
     Dosage: 40 MILLIGRAM
     Route: 065
  4. NEXIUM [Suspect]
     Active Substance: ESOMEPRAZOLE MAGNESIUM
     Dosage: 40 MILLIGRAM
     Route: 065
  5. LANSOPRAZOLE [Suspect]
     Active Substance: LANSOPRAZOLE
     Dosage: DELAYED RELEASE
     Route: 065
  6. LANSOPRAZOLE [Suspect]
     Active Substance: LANSOPRAZOLE
     Dosage: DELAYED RELEASE
     Route: 065
  7. LISINOPRIL [Suspect]
     Active Substance: LISINOPRIL
     Dosage: THERAPY DURATION 152 DAYS
  8. LISINOPRIL [Suspect]
     Active Substance: LISINOPRIL
     Dosage: THERAPY DURATION 152 DAYS
     Route: 048
  9. LISINOPRIL [Suspect]
     Active Substance: LISINOPRIL
     Route: 065
  10. LISINOPRIL [Suspect]
     Active Substance: LISINOPRIL
     Route: 065
  11. LISINOPRIL [Suspect]
     Active Substance: LISINOPRIL
     Dosage: THERAPY DURATION 54 DAYS
  12. LISINOPRIL [Suspect]
     Active Substance: LISINOPRIL
     Dosage: THERAPY DURATION 54 DAYS
     Route: 048
  13. METRONIDAZOLE [Suspect]
     Active Substance: METRONIDAZOLE
     Route: 065
  14. METRONIDAZOLE [Suspect]
     Active Substance: METRONIDAZOLE
     Route: 065
  15. LISINOPRIL [Suspect]
     Active Substance: LISINOPRIL
     Route: 065
  16. LISINOPRIL [Suspect]
     Active Substance: LISINOPRIL
     Route: 065
  17. LISINOPRIL [Suspect]
     Active Substance: LISINOPRIL
     Route: 065
  18. LISINOPRIL [Suspect]
     Active Substance: LISINOPRIL
     Route: 065
  19. MACROBID [Concomitant]
     Active Substance: NITROFURANTOIN\NITROFURANTOIN MONOHYDRATE
     Indication: Product used for unknown indication
     Route: 065
  20. MACROBID [Concomitant]
     Active Substance: NITROFURANTOIN\NITROFURANTOIN MONOHYDRATE
     Route: 065
  21. MOMETASONE FUROATE [Concomitant]
     Active Substance: MOMETASONE FUROATE
     Indication: Migraine
     Route: 065
  22. MOMETASONE FUROATE [Concomitant]
     Active Substance: MOMETASONE FUROATE
     Route: 065
  23. MOMETASONE FUROATE [Concomitant]
     Active Substance: MOMETASONE FUROATE
     Dosage: THERAPY DURATION 144 DAYS
     Route: 065
  24. MOMETASONE FUROATE [Concomitant]
     Active Substance: MOMETASONE FUROATE
     Dosage: THERAPY DURATION 144 DAYS
     Route: 065
  25. MOMETASONE FUROATE [Concomitant]
     Active Substance: MOMETASONE FUROATE
     Dosage: THERAPY DURATION 147 DAYS
     Route: 065
  26. MOMETASONE FUROATE [Concomitant]
     Active Substance: MOMETASONE FUROATE
     Dosage: THERAPY DURATION 147 DAYS
     Route: 065
  27. MOMETASONE FUROATE [Concomitant]
     Active Substance: MOMETASONE FUROATE
     Indication: Product used for unknown indication
     Route: 065
  28. MOMETASONE FUROATE [Concomitant]
     Active Substance: MOMETASONE FUROATE
     Route: 065
  29. POLYETHYLENE GLYCOL 3350 [Concomitant]
     Active Substance: POLYETHYLENE GLYCOL 3350
     Indication: Product used for unknown indication
     Route: 065
  30. POLYETHYLENE GLYCOL 3350 [Concomitant]
     Active Substance: POLYETHYLENE GLYCOL 3350
     Route: 065
  31. METOCLOPRAMIDE [Concomitant]
     Active Substance: METOCLOPRAMIDE
     Route: 065
  32. METOCLOPRAMIDE [Concomitant]
     Active Substance: METOCLOPRAMIDE
     Route: 065
  33. METOCLOPRAMIDE [Concomitant]
     Active Substance: METOCLOPRAMIDE
     Route: 065
  34. METOCLOPRAMIDE [Concomitant]
     Active Substance: METOCLOPRAMIDE
     Route: 065
  35. METOCLOPRAMIDE [Concomitant]
     Active Substance: METOCLOPRAMIDE
     Route: 065
  36. METOCLOPRAMIDE [Concomitant]
     Active Substance: METOCLOPRAMIDE
     Route: 065
  37. METOCLOPRAMIDE [Concomitant]
     Active Substance: METOCLOPRAMIDE
     Route: 065
  38. METOCLOPRAMIDE [Concomitant]
     Active Substance: METOCLOPRAMIDE
     Route: 065
  39. METOCLOPRAMIDE [Concomitant]
     Active Substance: METOCLOPRAMIDE
     Indication: Product used for unknown indication
     Route: 065
  40. METOCLOPRAMIDE [Concomitant]
     Active Substance: METOCLOPRAMIDE
     Route: 065
  41. MORPHINE SULFATE [Concomitant]
     Active Substance: MORPHINE SULFATE
     Indication: Product used for unknown indication
     Route: 065
  42. MORPHINE SULFATE [Concomitant]
     Active Substance: MORPHINE SULFATE
     Route: 065
  43. NAPROXEN [Concomitant]
     Active Substance: NAPROXEN
     Indication: Product used for unknown indication
     Route: 065
  44. NAPROXEN [Concomitant]
     Active Substance: NAPROXEN
     Route: 065
  45. OSELTAMIVIR [Concomitant]
     Active Substance: OSELTAMIVIR
     Indication: Product used for unknown indication
     Route: 065
  46. OSELTAMIVIR [Concomitant]
     Active Substance: OSELTAMIVIR
     Route: 065
  47. PANTOPRAZOLE [Concomitant]
     Active Substance: PANTOPRAZOLE
     Indication: Product used for unknown indication
     Route: 065
  48. PANTOPRAZOLE [Concomitant]
     Active Substance: PANTOPRAZOLE
     Route: 065
  49. PREDNISONE [Suspect]
     Active Substance: PREDNISONE
     Indication: Product used for unknown indication
     Dosage: THERAPY DURATION 1 DAYS
     Route: 065
  50. PREDNISONE [Suspect]
     Active Substance: PREDNISONE
     Dosage: THERAPY DURATION 1 DAYS
     Route: 065
  51. PREDNISONE [Suspect]
     Active Substance: PREDNISONE
     Route: 065
  52. PREDNISONE [Suspect]
     Active Substance: PREDNISONE
     Route: 065
  53. PROPRANOLOL HYDROCHLORIDE [Concomitant]
     Active Substance: PROPRANOLOL HYDROCHLORIDE
     Dosage: THERAPY DURATION 2 YEARS
     Route: 065
  54. PROPRANOLOL HYDROCHLORIDE [Concomitant]
     Active Substance: PROPRANOLOL HYDROCHLORIDE
     Dosage: THERAPY DURATION 2 YEARS
     Route: 065
  55. PROPRANOLOL HYDROCHLORIDE [Concomitant]
     Active Substance: PROPRANOLOL HYDROCHLORIDE
     Dosage: THERAPY DURATION 2 YEARS
     Route: 065
  56. PROPRANOLOL HYDROCHLORIDE [Concomitant]
     Active Substance: PROPRANOLOL HYDROCHLORIDE
     Dosage: THERAPY DURATION 2 YEARS
     Route: 065
  57. PROPRANOLOL HYDROCHLORIDE [Concomitant]
     Active Substance: PROPRANOLOL HYDROCHLORIDE
     Route: 065
  58. PROPRANOLOL HYDROCHLORIDE [Concomitant]
     Active Substance: PROPRANOLOL HYDROCHLORIDE
     Route: 065
  59. PROPRANOLOL HYDROCHLORIDE [Concomitant]
     Active Substance: PROPRANOLOL HYDROCHLORIDE
     Route: 065
  60. PROPRANOLOL HYDROCHLORIDE [Concomitant]
     Active Substance: PROPRANOLOL HYDROCHLORIDE
     Route: 065
  61. PROPRANOLOL HYDROCHLORIDE [Concomitant]
     Active Substance: PROPRANOLOL HYDROCHLORIDE
     Route: 065
  62. PROPRANOLOL HYDROCHLORIDE [Concomitant]
     Active Substance: PROPRANOLOL HYDROCHLORIDE
     Route: 065
  63. PROPRANOLOL HYDROCHLORIDE [Concomitant]
     Active Substance: PROPRANOLOL HYDROCHLORIDE
     Route: 065
  64. PROPRANOLOL HYDROCHLORIDE [Concomitant]
     Active Substance: PROPRANOLOL HYDROCHLORIDE
     Route: 065
  65. RABEPRAZOLE [Concomitant]
     Active Substance: RABEPRAZOLE
     Indication: Migraine
     Dosage: THERAPY DURATION 6 DAYS
     Route: 065
  66. RABEPRAZOLE [Concomitant]
     Active Substance: RABEPRAZOLE
     Dosage: THERAPY DURATION 6 DAYS
     Route: 065
  67. RABEPRAZOLE [Concomitant]
     Active Substance: RABEPRAZOLE
     Dosage: THERAPY DURATION 54 DAYS
     Route: 065
  68. RABEPRAZOLE [Concomitant]
     Active Substance: RABEPRAZOLE
     Dosage: THERAPY DURATION 54 DAYS
     Route: 065
  69. RABEPRAZOLE [Concomitant]
     Active Substance: RABEPRAZOLE
     Route: 065
  70. RABEPRAZOLE [Concomitant]
     Active Substance: RABEPRAZOLE
     Route: 065
  71. RABEPRAZOLE [Concomitant]
     Active Substance: RABEPRAZOLE
     Dosage: THERAPY DURATION 144 DAYS
     Route: 065
  72. RABEPRAZOLE [Concomitant]
     Active Substance: RABEPRAZOLE
     Dosage: THERAPY DURATION 144 DAYS
     Route: 065
  73. RABEPRAZOLE [Concomitant]
     Active Substance: RABEPRAZOLE
     Route: 065
  74. RABEPRAZOLE [Concomitant]
     Active Substance: RABEPRAZOLE
     Route: 065
  75. RABEPRAZOLE [Concomitant]
     Active Substance: RABEPRAZOLE
     Route: 065
  76. RABEPRAZOLE [Concomitant]
     Active Substance: RABEPRAZOLE
     Route: 065
  77. RABEPRAZOLE [Concomitant]
     Active Substance: RABEPRAZOLE
     Dosage: THERAPY DURATION 147 HOURS
     Route: 065
  78. RABEPRAZOLE [Concomitant]
     Active Substance: RABEPRAZOLE
     Dosage: THERAPY DURATION 147 HOURS
     Route: 065
  79. RABEPRAZOLE [Concomitant]
     Active Substance: RABEPRAZOLE
     Dosage: THERAPY DURATION 23 DAYS
     Route: 065
  80. RABEPRAZOLE [Concomitant]
     Active Substance: RABEPRAZOLE
     Dosage: THERAPY DURATION 23 DAYS
     Route: 065
  81. RABEPRAZOLE [Concomitant]
     Active Substance: RABEPRAZOLE
     Dosage: THERAPY DURATION 394 DAYS
     Route: 065
  82. RABEPRAZOLE [Concomitant]
     Active Substance: RABEPRAZOLE
     Dosage: THERAPY DURATION 394 DAYS
     Route: 065
  83. RABEPRAZOLE [Concomitant]
     Active Substance: RABEPRAZOLE
     Dosage: THERAPY DURATION 77 DAYS
     Route: 065
  84. RABEPRAZOLE [Concomitant]
     Active Substance: RABEPRAZOLE
     Dosage: THERAPY DURATION 77 DAYS
     Route: 065
  85. RABEPRAZOLE [Concomitant]
     Active Substance: RABEPRAZOLE
     Dosage: THERAPY DURATION 28 DAYS
     Route: 065
  86. RABEPRAZOLE [Concomitant]
     Active Substance: RABEPRAZOLE
     Dosage: THERAPY DURATION 28 DAYS
     Route: 065
  87. RABEPRAZOLE [Concomitant]
     Active Substance: RABEPRAZOLE
     Dosage: THERAPY DURATION 67 DAYS
     Route: 065
  88. RABEPRAZOLE [Concomitant]
     Active Substance: RABEPRAZOLE
     Dosage: THERAPY DURATION 67 DAYS
     Route: 065
  89. RABEPRAZOLE [Concomitant]
     Active Substance: RABEPRAZOLE
     Dosage: THERAPY DURATION 1 DAYS
     Route: 065
  90. RABEPRAZOLE [Concomitant]
     Active Substance: RABEPRAZOLE
     Dosage: THERAPY DURATION 1 DAYS
     Route: 065
  91. RABEPRAZOLE [Concomitant]
     Active Substance: RABEPRAZOLE
     Dosage: THERAPY DURATION 62 DAYS
     Route: 065
  92. RABEPRAZOLE [Concomitant]
     Active Substance: RABEPRAZOLE
     Dosage: THERAPY DURATION 62 DAYS
     Route: 065
  93. RABEPRAZOLE [Concomitant]
     Active Substance: RABEPRAZOLE
     Dosage: THERAPY DURATION 21 DAYS
     Route: 065
  94. RABEPRAZOLE [Concomitant]
     Active Substance: RABEPRAZOLE
     Dosage: THERAPY DURATION 21 DAYS
     Route: 065
  95. RABEPRAZOLE [Concomitant]
     Active Substance: RABEPRAZOLE
     Dosage: THERAPY DURATION 140 DAYS
     Route: 065
  96. RABEPRAZOLE [Concomitant]
     Active Substance: RABEPRAZOLE
     Dosage: THERAPY DURATION 140 DAYS
     Route: 065
  97. RABEPRAZOLE [Concomitant]
     Active Substance: RABEPRAZOLE
     Dosage: THERAPY DURATION 143 DAYS
     Route: 065
  98. RABEPRAZOLE [Concomitant]
     Active Substance: RABEPRAZOLE
     Dosage: THERAPY DURATION 143 DAYS
     Route: 065
  99. RABEPRAZOLE [Concomitant]
     Active Substance: RABEPRAZOLE
     Dosage: THERAPY DURATION 137 DAYS
     Route: 065
  100. RABEPRAZOLE [Concomitant]
     Active Substance: RABEPRAZOLE
     Dosage: THERAPY DURATION 137 DAYS
     Route: 065
  101. RABEPRAZOLE [Concomitant]
     Active Substance: RABEPRAZOLE
     Dosage: THERAPY DURATION 159 DAYS
     Route: 065
  102. RABEPRAZOLE [Concomitant]
     Active Substance: RABEPRAZOLE
     Dosage: THERAPY DURATION 159 DAYS
     Route: 065
  103. RABEPRAZOLE [Concomitant]
     Active Substance: RABEPRAZOLE
     Dosage: THERAPY DURATION 143 DAYS
     Route: 065
  104. RABEPRAZOLE [Concomitant]
     Active Substance: RABEPRAZOLE
     Dosage: THERAPY DURATION 143 DAYS
     Route: 065
  105. RIZATRIPTAN [Concomitant]
     Active Substance: RIZATRIPTAN
     Indication: Migraine
     Dosage: THERAPY DURATION 1 DAYS
     Route: 065
  106. RIZATRIPTAN [Concomitant]
     Active Substance: RIZATRIPTAN
     Dosage: THERAPY DURATION 1 DAYS
     Route: 065
  107. RIZATRIPTAN [Concomitant]
     Active Substance: RIZATRIPTAN
     Dosage: THERAPY DURATION 1 DAYS
     Route: 065
  108. RIZATRIPTAN [Concomitant]
     Active Substance: RIZATRIPTAN
     Dosage: THERAPY DURATION 1 DAYS
     Route: 065
  109. RIZATRIPTAN [Concomitant]
     Active Substance: RIZATRIPTAN
     Route: 065
  110. RIZATRIPTAN [Concomitant]
     Active Substance: RIZATRIPTAN
     Route: 065
  111. ALBUTEROL [Concomitant]
     Active Substance: ALBUTEROL
     Indication: Product used for unknown indication
     Dosage: METERED-DOSE (AEROSOL)
     Route: 065
  112. ALBUTEROL [Concomitant]
     Active Substance: ALBUTEROL
     Dosage: METERED-DOSE (AEROSOL)
     Route: 065
  113. ALBUTEROL [Concomitant]
     Active Substance: ALBUTEROL
     Dosage: THERAPY DURATION 1 DAYS, METERED-DOSE (AEROSOL)
     Route: 065
  114. ALBUTEROL [Concomitant]
     Active Substance: ALBUTEROL
     Dosage: THERAPY DURATION 1 DAYS, METERED-DOSE (AEROSOL)
     Route: 065
  115. SERTRALINE [Suspect]
     Active Substance: SERTRALINE HYDROCHLORIDE
     Dosage: 50 MILLIGRAM
     Route: 065
  116. SERTRALINE [Suspect]
     Active Substance: SERTRALINE HYDROCHLORIDE
     Dosage: 50 MILLIGRAM
     Route: 065
  117. SERTRALINE [Suspect]
     Active Substance: SERTRALINE HYDROCHLORIDE
     Route: 065
  118. SERTRALINE [Suspect]
     Active Substance: SERTRALINE HYDROCHLORIDE
     Route: 065
  119. SULFATRIM [Concomitant]
     Active Substance: SULFAMETHOXAZOLE\TRIMETHOPRIM
     Indication: Product used for unknown indication
     Route: 065
  120. SULFATRIM [Concomitant]
     Active Substance: SULFAMETHOXAZOLE\TRIMETHOPRIM
     Route: 065
  121. SUMATRIPTAN [Suspect]
     Active Substance: SUMATRIPTAN
     Indication: Migraine
     Dosage: THERAPY DURATION 1 DAYS
     Route: 065
  122. SUMATRIPTAN [Suspect]
     Active Substance: SUMATRIPTAN
     Dosage: THERAPY DURATION 1 DAYS
     Route: 065
  123. SUMATRIPTAN [Suspect]
     Active Substance: SUMATRIPTAN
     Route: 065
  124. SUMATRIPTAN [Suspect]
     Active Substance: SUMATRIPTAN
     Route: 065
  125. TOPIRAMATE [Suspect]
     Active Substance: TOPIRAMATE
     Route: 065
  126. TOPIRAMATE [Suspect]
     Active Substance: TOPIRAMATE
     Route: 065
  127. TOPIRAMATE [Suspect]
     Active Substance: TOPIRAMATE
     Route: 065
  128. TOPIRAMATE [Suspect]
     Active Substance: TOPIRAMATE
     Route: 065
  129. TOPIRAMATE [Suspect]
     Active Substance: TOPIRAMATE
     Route: 065
  130. TOPIRAMATE [Suspect]
     Active Substance: TOPIRAMATE
     Route: 065
  131. TOPIRAMATE [Suspect]
     Active Substance: TOPIRAMATE
     Route: 065
  132. TOPIRAMATE [Suspect]
     Active Substance: TOPIRAMATE
     Route: 065
  133. TRAMADOL HYDROCHLORIDE [Suspect]
     Active Substance: TRAMADOL HYDROCHLORIDE
     Indication: Product used for unknown indication
     Route: 065
  134. TRAMADOL HYDROCHLORIDE [Suspect]
     Active Substance: TRAMADOL HYDROCHLORIDE
     Route: 065
  135. TRAMADOL HYDROCHLORIDE [Suspect]
     Active Substance: TRAMADOL HYDROCHLORIDE
     Dosage: THERAPY DURATION 1.0 DAYS
     Route: 065
  136. TRAMADOL HYDROCHLORIDE [Suspect]
     Active Substance: TRAMADOL HYDROCHLORIDE
     Dosage: THERAPY DURATION 1.0 DAYS
     Route: 065
  137. SULFAMETHOXAZOLE\TRIMETHOPRIM [Suspect]
     Active Substance: SULFAMETHOXAZOLE\TRIMETHOPRIM
     Route: 065
  138. SULFAMETHOXAZOLE\TRIMETHOPRIM [Suspect]
     Active Substance: SULFAMETHOXAZOLE\TRIMETHOPRIM
     Route: 065
  139. SULFAMETHOXAZOLE\TRIMETHOPRIM [Suspect]
     Active Substance: SULFAMETHOXAZOLE\TRIMETHOPRIM
     Route: 065
  140. SULFAMETHOXAZOLE\TRIMETHOPRIM [Suspect]
     Active Substance: SULFAMETHOXAZOLE\TRIMETHOPRIM
     Route: 065
  141. VENLAFAXINE HYDROCHLORIDE [Suspect]
     Active Substance: VENLAFAXINE HYDROCHLORIDE
     Indication: Product used for unknown indication
     Route: 065
  142. VENLAFAXINE HYDROCHLORIDE [Suspect]
     Active Substance: VENLAFAXINE HYDROCHLORIDE
     Route: 065
  143. VENLAFAXINE HYDROCHLORIDE [Suspect]
     Active Substance: VENLAFAXINE HYDROCHLORIDE
     Route: 065
  144. VENLAFAXINE HYDROCHLORIDE [Suspect]
     Active Substance: VENLAFAXINE HYDROCHLORIDE
     Route: 065
  145. ZOLMITRIPTAN [Suspect]
     Active Substance: ZOLMITRIPTAN
     Route: 065
  146. ZOLMITRIPTAN [Suspect]
     Active Substance: ZOLMITRIPTAN
     Route: 065
  147. ZOLMITRIPTAN [Suspect]
     Active Substance: ZOLMITRIPTAN
     Route: 065
  148. ZOLMITRIPTAN [Suspect]
     Active Substance: ZOLMITRIPTAN
     Route: 065
  149. ACETAMINOPHEN [Suspect]
     Active Substance: ACETAMINOPHEN
     Route: 065
  150. ACETAMINOPHEN [Suspect]
     Active Substance: ACETAMINOPHEN
     Route: 065
  151. ACETAMINOPHEN [Suspect]
     Active Substance: ACETAMINOPHEN
     Route: 065
  152. ACETAMINOPHEN [Suspect]
     Active Substance: ACETAMINOPHEN
     Route: 065
  153. ACETAMINOPHEN [Concomitant]
     Active Substance: ACETAMINOPHEN
     Indication: Product used for unknown indication
     Route: 065
  154. ACETAMINOPHEN [Concomitant]
     Active Substance: ACETAMINOPHEN
     Route: 065
  155. AMOXICILLIN [Suspect]
     Active Substance: AMOXICILLIN
     Route: 065
  156. AMOXICILLIN [Suspect]
     Active Substance: AMOXICILLIN
     Route: 065
  157. AMOXICILLIN [Suspect]
     Active Substance: AMOXICILLIN
     Route: 065
  158. AMOXICILLIN [Suspect]
     Active Substance: AMOXICILLIN
     Route: 065
  159. AMOXICILLIN [Suspect]
     Active Substance: AMOXICILLIN
     Dosage: THERAPY DURATION 1 DAYS
     Route: 065
  160. AMOXICILLIN [Suspect]
     Active Substance: AMOXICILLIN
     Dosage: THERAPY DURATION 1 DAYS
     Route: 065
  161. AZITHROMYCIN [Suspect]
     Active Substance: AZITHROMYCIN
     Dosage: THERAPY DURATION 1 DAYS
     Route: 065
  162. AZITHROMYCIN [Suspect]
     Active Substance: AZITHROMYCIN
     Dosage: THERAPY DURATION 1 DAYS
     Route: 065
  163. AZITHROMYCIN [Suspect]
     Active Substance: AZITHROMYCIN
     Dosage: THERAPY DURATION 1 DAYS
     Route: 065
  164. AZITHROMYCIN [Suspect]
     Active Substance: AZITHROMYCIN
     Dosage: THERAPY DURATION 1 DAYS
     Route: 065
  165. AZITHROMYCIN [Suspect]
     Active Substance: AZITHROMYCIN
     Route: 065
  166. AZITHROMYCIN [Suspect]
     Active Substance: AZITHROMYCIN
     Route: 065
  167. AZITHROMYCIN [Suspect]
     Active Substance: AZITHROMYCIN
     Route: 065
  168. AZITHROMYCIN [Suspect]
     Active Substance: AZITHROMYCIN
     Route: 065
  169. AZITHROMYCIN [Concomitant]
     Active Substance: AZITHROMYCIN
     Indication: Product used for unknown indication
     Route: 065
  170. AZITHROMYCIN [Concomitant]
     Active Substance: AZITHROMYCIN
     Route: 065
  171. BOTULINUM TOXIN TYPE A [Suspect]
     Active Substance: BOTULINUM TOXIN TYPE A
     Indication: Product used for unknown indication
     Dosage: POWDER FOR SOLUTION, THERAPY DURATION 63 DAYS
     Route: 065
  172. BOTULINUM TOXIN TYPE A [Suspect]
     Active Substance: BOTULINUM TOXIN TYPE A
     Dosage: POWDER FOR SOLUTION, THERAPY DURATION 63 DAYS
     Route: 065
  173. BOTULINUM TOXIN TYPE A [Suspect]
     Active Substance: BOTULINUM TOXIN TYPE A
     Dosage: POWDER FOR SOLUTION, THERAPY DURATION 59 DAYS
     Route: 065
  174. BOTULINUM TOXIN TYPE A [Suspect]
     Active Substance: BOTULINUM TOXIN TYPE A
     Dosage: POWDER FOR SOLUTION, THERAPY DURATION 59 DAYS
     Route: 065
  175. BOTULINUM TOXIN TYPE A [Suspect]
     Active Substance: BOTULINUM TOXIN TYPE A
     Dosage: POWDER FOR SOLUTION, THERAPY DURATION 1 DAYS
     Route: 065
  176. BOTULINUM TOXIN TYPE A [Suspect]
     Active Substance: BOTULINUM TOXIN TYPE A
     Dosage: POWDER FOR SOLUTION, THERAPY DURATION 1 DAYS
     Route: 065
  177. BOTULINUM TOXIN TYPE A [Suspect]
     Active Substance: BOTULINUM TOXIN TYPE A
     Dosage: POWDER FOR SOLUTION, THERAPY DURATION 61 DAYS
     Route: 065
  178. BOTULINUM TOXIN TYPE A [Suspect]
     Active Substance: BOTULINUM TOXIN TYPE A
     Dosage: POWDER FOR SOLUTION, THERAPY DURATION 61 DAYS
     Route: 065
  179. BOTULINUM TOXIN TYPE A [Suspect]
     Active Substance: BOTULINUM TOXIN TYPE A
     Dosage: POWDER FOR SOLUTION, THERAPY DURATION 62 DAYS
     Route: 065
  180. BOTULINUM TOXIN TYPE A [Suspect]
     Active Substance: BOTULINUM TOXIN TYPE A
     Dosage: POWDER FOR SOLUTION, THERAPY DURATION 62 DAYS
     Route: 065
  181. BOTULINUM TOXIN TYPE A [Suspect]
     Active Substance: BOTULINUM TOXIN TYPE A
     Dosage: POWDER FOR SOLUTION, THERAPY DURATION 181 DAYS
     Route: 065
  182. BOTULINUM TOXIN TYPE A [Suspect]
     Active Substance: BOTULINUM TOXIN TYPE A
     Dosage: POWDER FOR SOLUTION, THERAPY DURATION 181 DAYS
     Route: 065
  183. CEFUROXIME [Concomitant]
     Active Substance: CEFUROXIME
     Indication: Product used for unknown indication
     Route: 065
  184. CEFUROXIME [Concomitant]
     Active Substance: CEFUROXIME
     Route: 065
  185. CEPHALEXIN [Concomitant]
     Active Substance: CEPHALEXIN
     Indication: Product used for unknown indication
     Route: 065
  186. CEPHALEXIN [Concomitant]
     Active Substance: CEPHALEXIN
     Route: 065
  187. CIPROFLOXACIN [Suspect]
     Active Substance: CIPROFLOXACIN
     Route: 065
  188. CIPROFLOXACIN [Suspect]
     Active Substance: CIPROFLOXACIN
     Route: 065
  189. CIPROFLOXACIN [Suspect]
     Active Substance: CIPROFLOXACIN
     Route: 065
  190. CIPROFLOXACIN [Suspect]
     Active Substance: CIPROFLOXACIN
     Route: 065
  191. CIPROFLOXACIN [Suspect]
     Active Substance: CIPROFLOXACIN
     Dosage: THERAPY DURATION 1 DAYS
     Route: 065
  192. CIPROFLOXACIN [Suspect]
     Active Substance: CIPROFLOXACIN
     Dosage: THERAPY DURATION 1 DAYS
     Route: 065
  193. CIPROFLOXACIN [Suspect]
     Active Substance: CIPROFLOXACIN
     Dosage: THERAPY DURATION 1 DAYS
     Route: 065
  194. CIPROFLOXACIN [Suspect]
     Active Substance: CIPROFLOXACIN
     Dosage: THERAPY DURATION 1 DAYS
     Route: 065
  195. CIPROFLOXACIN [Suspect]
     Active Substance: CIPROFLOXACIN
     Route: 065
  196. CIPROFLOXACIN [Suspect]
     Active Substance: CIPROFLOXACIN
     Route: 065
  197. CIPROFLOXACIN [Suspect]
     Active Substance: CIPROFLOXACIN
     Route: 065
  198. CIPROFLOXACIN [Suspect]
     Active Substance: CIPROFLOXACIN
     Route: 065
  199. CIPROFLOXACIN [Suspect]
     Active Substance: CIPROFLOXACIN
     Dosage: THERAPY DURATION 152
  200. CIPROFLOXACIN [Suspect]
     Active Substance: CIPROFLOXACIN
     Dosage: THERAPY DURATION 152
     Route: 048
  201. CIPROFLOXACIN [Suspect]
     Active Substance: CIPROFLOXACIN
     Dosage: THERAPY DURATION 152
  202. CIPROFLOXACIN [Suspect]
     Active Substance: CIPROFLOXACIN
     Dosage: THERAPY DURATION 152
     Route: 048
  203. CLARITHROMYCIN [Suspect]
     Active Substance: CLARITHROMYCIN
     Dosage: THERAPY DURATION 1 DAYS
     Route: 065
  204. CLARITHROMYCIN [Suspect]
     Active Substance: CLARITHROMYCIN
     Dosage: THERAPY DURATION 1 DAYS
     Route: 065
  205. CLARITHROMYCIN [Suspect]
     Active Substance: CLARITHROMYCIN
     Dosage: THERAPY DURATION 1 DAYS
     Route: 065
  206. CLARITHROMYCIN [Suspect]
     Active Substance: CLARITHROMYCIN
     Dosage: THERAPY DURATION 1 DAYS
     Route: 065
  207. CLARITHROMYCIN [Suspect]
     Active Substance: CLARITHROMYCIN
     Dosage: THERAPY DURATION 1 DAYS
     Route: 065
  208. CLARITHROMYCIN [Suspect]
     Active Substance: CLARITHROMYCIN
     Dosage: THERAPY DURATION 1 DAYS
     Route: 065
  209. CLARITHROMYCIN [Suspect]
     Active Substance: CLARITHROMYCIN
     Dosage: THERAPY DURATION 1 DAYS
     Route: 065
  210. CLARITHROMYCIN [Suspect]
     Active Substance: CLARITHROMYCIN
     Dosage: THERAPY DURATION 1 DAYS
     Route: 065
  211. CLARITHROMYCIN [Suspect]
     Active Substance: CLARITHROMYCIN
     Dosage: THERAPY DURATION 1 DAYS
     Route: 065
  212. CLARITHROMYCIN [Suspect]
     Active Substance: CLARITHROMYCIN
     Dosage: THERAPY DURATION 1 DAYS
     Route: 065
  213. CLARITHROMYCIN [Suspect]
     Active Substance: CLARITHROMYCIN
     Dosage: THERAPY DURATION 1 DAYS
     Route: 065
  214. CLARITHROMYCIN [Suspect]
     Active Substance: CLARITHROMYCIN
     Dosage: THERAPY DURATION 1 DAYS
     Route: 065
  215. CODEINE [Suspect]
     Active Substance: CODEINE
     Indication: Migraine
     Route: 065
  216. CODEINE [Suspect]
     Active Substance: CODEINE
     Route: 065
  217. CODEINE [Suspect]
     Active Substance: CODEINE
     Dosage: THERAPY DURATION 1 DAYS
     Route: 065
  218. CODEINE [Suspect]
     Active Substance: CODEINE
     Dosage: THERAPY DURATION 1 DAYS
     Route: 065
  219. DANAZOL [Concomitant]
     Active Substance: DANAZOL
     Indication: Product used for unknown indication
     Route: 065
  220. DANAZOL [Concomitant]
     Active Substance: DANAZOL
     Route: 065
  221. CYMBALTA [Concomitant]
     Active Substance: DULOXETINE HYDROCHLORIDE
     Indication: Product used for unknown indication
     Route: 065
  222. CYMBALTA [Concomitant]
     Active Substance: DULOXETINE HYDROCHLORIDE
     Route: 065
  223. DEXAMETHASONE [Suspect]
     Active Substance: DEXAMETHASONE
     Indication: Migraine
     Route: 065
  224. DEXAMETHASONE [Suspect]
     Active Substance: DEXAMETHASONE
     Route: 065
  225. DEXAMETHASONE [Suspect]
     Active Substance: DEXAMETHASONE
     Route: 065
  226. DEXAMETHASONE [Suspect]
     Active Substance: DEXAMETHASONE
     Route: 065
  227. DEXAMETHASONE [Suspect]
     Active Substance: DEXAMETHASONE
     Dosage: THERAPY DURATION 1 DAYS
     Route: 065
  228. DEXAMETHASONE [Suspect]
     Active Substance: DEXAMETHASONE
     Dosage: THERAPY DURATION 1 DAYS
     Route: 065
  229. DEXAMETHASONE [Suspect]
     Active Substance: DEXAMETHASONE
     Dosage: THERAPY DURATION 1 DAYS
     Route: 065
  230. DEXAMETHASONE [Suspect]
     Active Substance: DEXAMETHASONE
     Dosage: THERAPY DURATION 1 DAYS
     Route: 065
  231. DULOXETINE HYDROCHLORIDE [Suspect]
     Active Substance: DULOXETINE HYDROCHLORIDE
     Indication: Migraine
     Dosage: CAPSULE, DELAYED RELEASE
     Route: 065
  232. DULOXETINE HYDROCHLORIDE [Suspect]
     Active Substance: DULOXETINE HYDROCHLORIDE
     Dosage: CAPSULE, DELAYED RELEASE
     Route: 065
  233. DULOXETINE HYDROCHLORIDE [Suspect]
     Active Substance: DULOXETINE HYDROCHLORIDE
     Dosage: CAPSULE, DELAYED RELEASE
     Route: 065
  234. DULOXETINE HYDROCHLORIDE [Suspect]
     Active Substance: DULOXETINE HYDROCHLORIDE
     Dosage: CAPSULE, DELAYED RELEASE
     Route: 065
  235. ESCITALOPRAM [Suspect]
     Active Substance: ESCITALOPRAM OXALATE
     Indication: Migraine
     Route: 065
  236. ESCITALOPRAM [Suspect]
     Active Substance: ESCITALOPRAM OXALATE
     Route: 065
  237. FERROUS FUMARATE [Concomitant]
     Active Substance: FERROUS FUMARATE
     Indication: Product used for unknown indication
     Route: 065
  238. FERROUS FUMARATE [Concomitant]
     Active Substance: FERROUS FUMARATE
     Route: 065
  239. FLUCONAZOLE [Suspect]
     Active Substance: FLUCONAZOLE
     Dosage: THERAPY DURATION 1 DAYS
     Route: 065
  240. FLUCONAZOLE [Suspect]
     Active Substance: FLUCONAZOLE
     Dosage: THERAPY DURATION 1 DAYS
     Route: 065
  241. FLUCONAZOLE [Suspect]
     Active Substance: FLUCONAZOLE
     Dosage: THERAPY DURATION 1 DAYS
     Route: 065
  242. FLUCONAZOLE [Suspect]
     Active Substance: FLUCONAZOLE
     Dosage: THERAPY DURATION 1 DAYS
     Route: 065
  243. FLUOXETINE [Concomitant]
     Active Substance: FLUOXETINE HYDROCHLORIDE
     Indication: Product used for unknown indication
     Route: 065
  244. FLUOXETINE [Concomitant]
     Active Substance: FLUOXETINE HYDROCHLORIDE
     Route: 065
  245. FLUTICASONE [Concomitant]
     Active Substance: FLUTICASONE
     Indication: Product used for unknown indication
     Route: 065
  246. FLUTICASONE [Concomitant]
     Active Substance: FLUTICASONE
     Route: 065
  247. FROVATRIPTAN [Concomitant]
     Active Substance: FROVATRIPTAN
     Indication: Product used for unknown indication
     Route: 065
  248. FROVATRIPTAN [Concomitant]
     Active Substance: FROVATRIPTAN
     Route: 065
  249. HYDROMORPHONE [Suspect]
     Active Substance: HYDROMORPHONE
     Indication: Migraine
     Dosage: THERAPY DURATION 1 DAYS
     Route: 065
  250. HYDROMORPHONE [Suspect]
     Active Substance: HYDROMORPHONE
     Dosage: THERAPY DURATION 1 DAYS
     Route: 065
  251. HYDROMORPHONE [Suspect]
     Active Substance: HYDROMORPHONE
     Dosage: THERAPY DURATION 72 DAYS
     Route: 065
  252. HYDROMORPHONE [Suspect]
     Active Substance: HYDROMORPHONE
     Dosage: THERAPY DURATION 72 DAYS
     Route: 065
  253. HYDROMORPHONE [Suspect]
     Active Substance: HYDROMORPHONE
     Dosage: THERAPY DURATION 4 DAYS
     Route: 065
  254. HYDROMORPHONE [Suspect]
     Active Substance: HYDROMORPHONE
     Dosage: THERAPY DURATION 4 DAYS
     Route: 065
  255. HYDROMORPHONE [Suspect]
     Active Substance: HYDROMORPHONE
     Dosage: THERAPY DURATION 82 DAYS
     Route: 065
  256. HYDROMORPHONE [Suspect]
     Active Substance: HYDROMORPHONE
     Dosage: THERAPY DURATION 82 DAYS
     Route: 065
  257. HYDROMORPHONE [Suspect]
     Active Substance: HYDROMORPHONE
     Dosage: THERAPY DURATION 55 DAYS
     Route: 065
  258. HYDROMORPHONE [Suspect]
     Active Substance: HYDROMORPHONE
     Dosage: THERAPY DURATION 55 DAYS
     Route: 065
  259. HYDROMORPHONE [Suspect]
     Active Substance: HYDROMORPHONE
     Dosage: THERAPY DURATION 140 DAYS
     Route: 065
  260. HYDROMORPHONE [Suspect]
     Active Substance: HYDROMORPHONE
     Dosage: THERAPY DURATION 140 DAYS
     Route: 065
  261. HYDROMORPHONE [Suspect]
     Active Substance: HYDROMORPHONE
     Dosage: THERAPY DURATION 61 DAYS
     Route: 065
  262. HYDROMORPHONE [Suspect]
     Active Substance: HYDROMORPHONE
     Dosage: THERAPY DURATION 61 DAYS
     Route: 065
  263. HYDROMORPHONE [Suspect]
     Active Substance: HYDROMORPHONE
     Dosage: THERAPY DURATION 139 DAYS
     Route: 065
  264. HYDROMORPHONE [Suspect]
     Active Substance: HYDROMORPHONE
     Dosage: THERAPY DURATION 139 DAYS
     Route: 065
  265. HYDROMORPHONE [Suspect]
     Active Substance: HYDROMORPHONE
     Dosage: THERAPY DURATION 136 DAYS
     Route: 065
  266. HYDROMORPHONE [Suspect]
     Active Substance: HYDROMORPHONE
     Dosage: THERAPY DURATION 136 DAYS
     Route: 065
  267. HYDROMORPHONE [Suspect]
     Active Substance: HYDROMORPHONE
     Dosage: THERAPY DURATION 158 DAYS
     Route: 065
  268. HYDROMORPHONE [Suspect]
     Active Substance: HYDROMORPHONE
     Dosage: THERAPY DURATION 158 DAYS
     Route: 065
  269. HYDROMORPHONE [Suspect]
     Active Substance: HYDROMORPHONE
     Route: 065
  270. HYDROMORPHONE [Suspect]
     Active Substance: HYDROMORPHONE
     Route: 065
  271. SCOPOLAMINE [Suspect]
     Active Substance: SCOPOLAMINE
     Indication: Migraine
     Route: 065
  272. SCOPOLAMINE [Suspect]
     Active Substance: SCOPOLAMINE
     Route: 065
  273. INDOMETHACIN [Suspect]
     Active Substance: INDOMETHACIN
     Dosage: THERAPY DURATION 52 DAYS
  274. INDOMETHACIN [Suspect]
     Active Substance: INDOMETHACIN
     Dosage: THERAPY DURATION 52 DAYS
     Route: 054
  275. INDOMETHACIN [Suspect]
     Active Substance: INDOMETHACIN
     Dosage: THERAPY DURATION 63 DAYS
  276. INDOMETHACIN [Suspect]
     Active Substance: INDOMETHACIN
     Dosage: THERAPY DURATION 63 DAYS
     Route: 054
  277. INDOMETHACIN [Suspect]
     Active Substance: INDOMETHACIN
     Dosage: THERAPY DURATION 47 DAYS
  278. INDOMETHACIN [Suspect]
     Active Substance: INDOMETHACIN
     Dosage: THERAPY DURATION 47 DAYS
     Route: 054
  279. INDOMETHACIN [Suspect]
     Active Substance: INDOMETHACIN
     Dosage: THERAPY DURATION 321 DAYS
  280. INDOMETHACIN [Suspect]
     Active Substance: INDOMETHACIN
     Dosage: THERAPY DURATION 321 DAYS
     Route: 054
  281. INDOMETHACIN [Suspect]
     Active Substance: INDOMETHACIN
     Dosage: THERAPY DURATION 114 DAYS
  282. INDOMETHACIN [Suspect]
     Active Substance: INDOMETHACIN
     Dosage: THERAPY DURATION 114 DAYS
     Route: 054
  283. INDOMETHACIN [Suspect]
     Active Substance: INDOMETHACIN
     Dosage: THERAPY DURATION 45 DAYS
  284. INDOMETHACIN [Suspect]
     Active Substance: INDOMETHACIN
     Dosage: THERAPY DURATION 45 DAYS
     Route: 054
  285. INDOMETHACIN [Suspect]
     Active Substance: INDOMETHACIN
     Dosage: THERAPY DURATION 1 DAYS
  286. INDOMETHACIN [Suspect]
     Active Substance: INDOMETHACIN
     Dosage: THERAPY DURATION 1 DAYS
     Route: 054
  287. INDOMETHACIN [Suspect]
     Active Substance: INDOMETHACIN
     Dosage: THERAPY DURATION 52 DAYS
  288. INDOMETHACIN [Suspect]
     Active Substance: INDOMETHACIN
     Dosage: THERAPY DURATION 52 DAYS
     Route: 054
  289. INDOMETHACIN [Suspect]
     Active Substance: INDOMETHACIN
     Dosage: THERAPY DURATION 63 DAYS
  290. INDOMETHACIN [Suspect]
     Active Substance: INDOMETHACIN
     Dosage: THERAPY DURATION 63 DAYS
     Route: 054
  291. INDOMETHACIN [Suspect]
     Active Substance: INDOMETHACIN
     Dosage: THERAPY DURATION 177 DAYS
  292. INDOMETHACIN [Suspect]
     Active Substance: INDOMETHACIN
     Dosage: THERAPY DURATION 177 DAYS
     Route: 054
  293. INDOMETHACIN [Suspect]
     Active Substance: INDOMETHACIN
     Dosage: THERAPY DURATION 32 DAYS
  294. INDOMETHACIN [Suspect]
     Active Substance: INDOMETHACIN
     Dosage: THERAPY DURATION 32 DAYS
     Route: 054
  295. INDOMETHACIN [Suspect]
     Active Substance: INDOMETHACIN
     Dosage: THERAPY DURATION 62 DAYS
  296. INDOMETHACIN [Suspect]
     Active Substance: INDOMETHACIN
     Dosage: THERAPY DURATION 62 DAYS
     Route: 054
  297. INDOMETHACIN [Suspect]
     Active Substance: INDOMETHACIN
     Dosage: THERAPY DURATION 57 DAYS
  298. INDOMETHACIN [Suspect]
     Active Substance: INDOMETHACIN
     Dosage: THERAPY DURATION 57 DAYS
     Route: 054
  299. INDOMETHACIN [Suspect]
     Active Substance: INDOMETHACIN
     Dosage: THERAPY DURATION 62 DAYS
  300. INDOMETHACIN [Suspect]
     Active Substance: INDOMETHACIN
     Dosage: THERAPY DURATION 62 DAYS
     Route: 054
  301. INDOMETHACIN [Suspect]
     Active Substance: INDOMETHACIN
     Dosage: THERAPY DURATION 1 DAYS
  302. INDOMETHACIN [Suspect]
     Active Substance: INDOMETHACIN
     Dosage: THERAPY DURATION 1 DAYS
     Route: 054
  303. INDOMETHACIN [Suspect]
     Active Substance: INDOMETHACIN
     Dosage: THERAPY DURATION 143.0 DAYS
  304. INDOMETHACIN [Suspect]
     Active Substance: INDOMETHACIN
     Dosage: THERAPY DURATION 143.0 DAYS
     Route: 054
  305. INDOMETHACIN [Suspect]
     Active Substance: INDOMETHACIN
     Dosage: THERAPY DURATION 32 DAYS
  306. INDOMETHACIN [Suspect]
     Active Substance: INDOMETHACIN
     Dosage: THERAPY DURATION 32 DAYS
     Route: 054
  307. INDOMETHACIN [Suspect]
     Active Substance: INDOMETHACIN
     Dosage: THERAPY DURATION 143 DAYS
  308. INDOMETHACIN [Suspect]
     Active Substance: INDOMETHACIN
     Dosage: THERAPY DURATION 143 DAYS
     Route: 054
  309. INDOMETHACIN [Suspect]
     Active Substance: INDOMETHACIN
     Dosage: THERAPY DURATION 46 DAYS
  310. INDOMETHACIN [Suspect]
     Active Substance: INDOMETHACIN
     Dosage: THERAPY DURATION 46 DAYS
     Route: 054
  311. INDOMETHACIN [Suspect]
     Active Substance: INDOMETHACIN
     Dosage: THERAPY DURATION 177 DAYS
  312. INDOMETHACIN [Suspect]
     Active Substance: INDOMETHACIN
     Dosage: THERAPY DURATION 177 DAYS
     Route: 054
  313. INDOMETHACIN [Suspect]
     Active Substance: INDOMETHACIN
     Dosage: THERAPY DURATION 57 DAYS
  314. INDOMETHACIN [Suspect]
     Active Substance: INDOMETHACIN
     Dosage: THERAPY DURATION 57 DAYS
     Route: 054
  315. INDOMETHACIN [Suspect]
     Active Substance: INDOMETHACIN
     Dosage: THERAPY DURATION 147 DAYS
     Route: 065
  316. INDOMETHACIN [Suspect]
     Active Substance: INDOMETHACIN
     Dosage: THERAPY DURATION 147 DAYS
     Route: 065
  317. INDOMETHACIN [Suspect]
     Active Substance: INDOMETHACIN
  318. INDOMETHACIN [Suspect]
     Active Substance: INDOMETHACIN
     Route: 054
  319. INDOMETHACIN [Suspect]
     Active Substance: INDOMETHACIN
     Dosage: THERAPY DURATION 45 DAYS
     Route: 054
  320. INDOMETHACIN [Suspect]
     Active Substance: INDOMETHACIN
     Dosage: THERAPY DURATION 45 DAYS
  321. ZOPICLONE [Suspect]
     Active Substance: ZOPICLONE
     Indication: Migraine
     Dosage: THERAPY DURATION 55 DAYS
     Route: 065
  322. ZOPICLONE [Suspect]
     Active Substance: ZOPICLONE
     Dosage: THERAPY DURATION 55 DAYS
     Route: 065
  323. ZOPICLONE [Suspect]
     Active Substance: ZOPICLONE
     Dosage: THERAPY DURATION 37 DAYS
     Route: 065
  324. ZOPICLONE [Suspect]
     Active Substance: ZOPICLONE
     Dosage: THERAPY DURATION 37 DAYS
     Route: 065
  325. ZOPICLONE [Suspect]
     Active Substance: ZOPICLONE
     Dosage: THERAPY DURATION 52 DAYS
     Route: 065
  326. ZOPICLONE [Suspect]
     Active Substance: ZOPICLONE
     Dosage: THERAPY DURATION 52 DAYS
     Route: 065
  327. ZOPICLONE [Suspect]
     Active Substance: ZOPICLONE
     Dosage: THERAPY DURATION 67 DAYS
     Route: 065
  328. ZOPICLONE [Suspect]
     Active Substance: ZOPICLONE
     Dosage: THERAPY DURATION 67 DAYS
     Route: 065
  329. ZOPICLONE [Suspect]
     Active Substance: ZOPICLONE
     Dosage: THERAPY DURATION 1 DAYS
     Route: 065
  330. ZOPICLONE [Suspect]
     Active Substance: ZOPICLONE
     Dosage: THERAPY DURATION 1 DAYS
     Route: 065
  331. ZOPICLONE [Suspect]
     Active Substance: ZOPICLONE
     Dosage: THERAPY DURATION 62 DAYS
     Route: 065
  332. ZOPICLONE [Suspect]
     Active Substance: ZOPICLONE
     Dosage: THERAPY DURATION 62 DAYS
     Route: 065
  333. ZOPICLONE [Suspect]
     Active Substance: ZOPICLONE
     Dosage: THERAPY DURATION 58 DAYS
     Route: 065
  334. ZOPICLONE [Suspect]
     Active Substance: ZOPICLONE
     Dosage: THERAPY DURATION 58 DAYS
     Route: 065
  335. ZOPICLONE [Suspect]
     Active Substance: ZOPICLONE
     Dosage: THERAPY DURATION 47 DAYS
     Route: 065
  336. ZOPICLONE [Suspect]
     Active Substance: ZOPICLONE
     Dosage: THERAPY DURATION 47 DAYS
     Route: 065
  337. ZOPICLONE [Suspect]
     Active Substance: ZOPICLONE
     Dosage: THERAPY DURATION 59 DAYS
     Route: 065
  338. ZOPICLONE [Suspect]
     Active Substance: ZOPICLONE
     Dosage: THERAPY DURATION 59 DAYS
     Route: 065
  339. ZOPICLONE [Suspect]
     Active Substance: ZOPICLONE
     Dosage: THERAPY DURATION 61 DAYS
     Route: 065
  340. ZOPICLONE [Suspect]
     Active Substance: ZOPICLONE
     Dosage: THERAPY DURATION 61 DAYS
     Route: 065
  341. ZOPICLONE [Suspect]
     Active Substance: ZOPICLONE
     Dosage: THERAPY DURATION  73 DAYS
     Route: 065
  342. ZOPICLONE [Suspect]
     Active Substance: ZOPICLONE
     Dosage: THERAPY DURATION  73 DAYS
     Route: 065
  343. ZOPICLONE [Suspect]
     Active Substance: ZOPICLONE
     Dosage: THERAPY DURATION 94 DAYS
     Route: 065
  344. ZOPICLONE [Suspect]
     Active Substance: ZOPICLONE
     Dosage: THERAPY DURATION 94 DAYS
     Route: 065
  345. ZOPICLONE [Suspect]
     Active Substance: ZOPICLONE
     Dosage: THERAPY DURATION 59 DAYS
     Route: 065
  346. ZOPICLONE [Suspect]
     Active Substance: ZOPICLONE
     Dosage: THERAPY DURATION 59 DAYS
     Route: 065
  347. ZOPICLONE [Suspect]
     Active Substance: ZOPICLONE
     Dosage: THERAPY DURATION 56 DAYS
     Route: 065
  348. ZOPICLONE [Suspect]
     Active Substance: ZOPICLONE
     Dosage: THERAPY DURATION 56 DAYS
     Route: 065
  349. ZOPICLONE [Suspect]
     Active Substance: ZOPICLONE
     Dosage: THERAPY DURATION 1 DAYS
     Route: 065
  350. ZOPICLONE [Suspect]
     Active Substance: ZOPICLONE
     Dosage: THERAPY DURATION 1 DAYS
     Route: 065
  351. ZOPICLONE [Suspect]
     Active Substance: ZOPICLONE
     Route: 065
  352. ZOPICLONE [Suspect]
     Active Substance: ZOPICLONE
     Route: 065
  353. ZOPICLONE [Suspect]
     Active Substance: ZOPICLONE
     Dosage: THERAPY DURATION 141 DAYS
     Route: 065
  354. ZOPICLONE [Suspect]
     Active Substance: ZOPICLONE
     Dosage: THERAPY DURATION 141 DAYS
     Route: 065
  355. ZOPICLONE [Suspect]
     Active Substance: ZOPICLONE
     Dosage: THERAPY DURATION 62 DAYS
     Route: 065
  356. ZOPICLONE [Suspect]
     Active Substance: ZOPICLONE
     Dosage: THERAPY DURATION 62 DAYS
     Route: 065
  357. ZOPICLONE [Suspect]
     Active Substance: ZOPICLONE
     Dosage: THERAPY DURATION 83 DAYS
     Route: 065
  358. ZOPICLONE [Suspect]
     Active Substance: ZOPICLONE
     Dosage: THERAPY DURATION 83 DAYS
     Route: 065
  359. ZOPICLONE [Suspect]
     Active Substance: ZOPICLONE
     Route: 065
  360. ZOPICLONE [Suspect]
     Active Substance: ZOPICLONE
     Route: 065
  361. ZOPICLONE [Suspect]
     Active Substance: ZOPICLONE
     Dosage: THERAPY DURATION 56 DAYS
     Route: 065
  362. ZOPICLONE [Suspect]
     Active Substance: ZOPICLONE
     Dosage: THERAPY DURATION 56 DAYS
     Route: 065
  363. ZOPICLONE [Suspect]
     Active Substance: ZOPICLONE
     Dosage: THERAPY DURATION 53 DAYS
     Route: 065
  364. ZOPICLONE [Suspect]
     Active Substance: ZOPICLONE
     Dosage: THERAPY DURATION 53 DAYS
     Route: 065
  365. ZOPICLONE [Suspect]
     Active Substance: ZOPICLONE
     Dosage: THERAPY DURATION 45 DAYS
     Route: 065
  366. ZOPICLONE [Suspect]
     Active Substance: ZOPICLONE
     Dosage: THERAPY DURATION 45 DAYS
     Route: 065

REACTIONS (9)
  - Angioedema [Unknown]
  - Drug intolerance [Unknown]
  - Hypersensitivity [Unknown]
  - Swelling face [Unknown]
  - Dysphonia [Unknown]
  - Off label use [Unknown]
  - Swollen tongue [Unknown]
  - Headache [Unknown]
  - Drug ineffective for unapproved indication [Unknown]
